FAERS Safety Report 7968334-1 (Version None)
Quarter: 2011Q4

REPORT INFORMATION
  Report Type: 
  Country: None (occurrence: None)
  Receive Date: 20111209
  Receipt Date: 20111201
  Transmission Date: 20120403
  Serious: Yes (Death, Other)
  Sender: FDA-Public Use
  Company Number: AU-JNJFOC-20111107377

PATIENT
  Sex: Male
  Weight: 135 kg

DRUGS (4)
  1. ATENOLOL [Concomitant]
     Indication: HYPERTENSION
     Route: 048
     Dates: start: 20090501
  2. STELARA [Suspect]
     Indication: PSORIASIS
     Route: 058
     Dates: start: 20111114, end: 20111114
  3. WARFARIN SODIUM [Concomitant]
     Route: 065
  4. AMIODARONE HCL [Concomitant]
     Route: 065
     Dates: start: 20110225

REACTIONS (2)
  - DEATH [None]
  - HYPOTENSION [None]
